FAERS Safety Report 21452642 (Version 1)
Quarter: 2022Q4

REPORT INFORMATION
  Report Type: Report from Study
  Country: US (occurrence: US)
  Receive Date: 20221013
  Receipt Date: 20221013
  Transmission Date: 20230113
  Serious: Yes (Other)
  Sender: FDA-Public Use
  Company Number: US-MYLANLABS-2022M1112734

PATIENT
  Age: 7 Year
  Sex: Female

DRUGS (6)
  1. DEXAMETHASONE [Suspect]
     Active Substance: DEXAMETHASONE
     Indication: Acute myeloid leukaemia
     Dosage: 10 MILLIGRAM/SQ. METER, 10 MG/ M2/DOSE ORALLY ON DAYS 1, 2, 4, 5, 8, 9, 11, AND 12
     Route: 048
  2. BORTEZOMIB [Suspect]
     Active Substance: BORTEZOMIB
     Indication: Acute myeloid leukaemia
     Dosage: 1.3 MILLIGRAM/SQ. METER, CYCLE, ON DAYS 2, 4, 8, 11, 22, 25, 29, AND 32
     Route: 042
  3. PANOBINOSTAT [Suspect]
     Active Substance: PANOBINOSTAT
     Indication: Acute myeloid leukaemia
     Dosage: 20 MG ORALLY ON DAYS 1, 3, 5, 8, 10, AND 12
     Route: 048
  4. SORAFENIB [Concomitant]
     Active Substance: SORAFENIB
     Indication: Acute myeloid leukaemia
     Dosage: UNK UNK, CYCLE
     Route: 065
  5. AZACITIDINE [Concomitant]
     Active Substance: AZACITIDINE
     Indication: Acute myeloid leukaemia
     Dosage: UNK UNK, CYCLE
     Route: 065
  6. DECITABINE [Concomitant]
     Active Substance: DECITABINE
     Indication: Acute myeloid leukaemia
     Dosage: RECEIVED 1 CYCLE
     Route: 065

REACTIONS (1)
  - Treatment failure [Unknown]
